FAERS Safety Report 7555828-6 (Version None)
Quarter: 2011Q2

REPORT INFORMATION
  Report Type: 
  Country: None (occurrence: None)
  Receive Date: 20110618
  Receipt Date: 20110603
  Transmission Date: 20111010
  Serious: Yes (Other)
  Sender: FDA-Public Use
  Company Number: US-BAYER-2011-048815

PATIENT
  Age: 43 Year
  Sex: Male
  Weight: 111 kg

DRUGS (1)
  1. ALKA-SELTZER EXTRA STRENGTH [Suspect]
     Indication: ARTHROPATHY
     Dosage: BOTTLE COUNT 24S
     Route: 048
     Dates: start: 20110602, end: 20110602

REACTIONS (2)
  - EYE HAEMORRHAGE [None]
  - FOREIGN BODY SENSATION IN EYES [None]
